FAERS Safety Report 15332408 (Version 3)
Quarter: 2018Q4

REPORT INFORMATION
  Report Type: Spontaneous
  Country: US (occurrence: US)
  Receive Date: 20180829
  Receipt Date: 20181129
  Transmission Date: 20190204
  Serious: No
  Sender: FDA-Public Use
  Company Number: US-GLAXOSMITHKLINE-US2018GSK151409

PATIENT
  Sex: Female

DRUGS (1)
  1. SUMATRIPTAN (SUMATRIPTAN SUCCINATE) SOLUTION FOR INJECTION IN PRE-FILL [Suspect]
     Active Substance: SUMATRIPTAN
     Indication: PRODUCT USED FOR UNKNOWN INDICATION
     Dosage: 6 MG, UNK

REACTIONS (3)
  - Circumstance or information capable of leading to medication error [Unknown]
  - Product complaint [Unknown]
  - Needle issue [Unknown]
